FAERS Safety Report 16970964 (Version 3)
Quarter: 2019Q4

REPORT INFORMATION
  Report Type: Spontaneous
  Country: ES (occurrence: ES)
  Receive Date: 20191029
  Receipt Date: 20191226
  Transmission Date: 20200122
  Serious: Yes (Other)
  Sender: FDA-Public Use
  Company Number: ES-SA-2019SA291935

PATIENT
  Age: 76 Year
  Sex: Female

DRUGS (1)
  1. SEVELAMER SALT NOT SPECIFIED [Suspect]
     Active Substance: SEVELAMER
     Indication: CHRONIC KIDNEY DISEASE-MINERAL AND BONE DISORDER

REACTIONS (8)
  - Chronic gastritis [Unknown]
  - Gastric polyps [Unknown]
  - Gastrointestinal injury [Recovering/Resolving]
  - Large intestine polyp [Unknown]
  - Gastrointestinal haemorrhage [Recovered/Resolved]
  - Anaemia [Unknown]
  - Crystal deposit intestine [Unknown]
  - Diverticulum [Unknown]
